FAERS Safety Report 7634505-7 (Version None)
Quarter: 2011Q3

REPORT INFORMATION
  Report Type: 
  Country: None (occurrence: None)
  Receive Date: 20110725
  Receipt Date: 20110714
  Transmission Date: 20111222
  Serious: Yes (Disabling, Other)
  Sender: FDA-Public Use
  Company Number: US-ASTRAZENECA-2010SE53055

PATIENT
  Age: 48 Year
  Sex: Female
  Weight: 104.3 kg

DRUGS (25)
  1. FEMHRT [Concomitant]
  2. TRAZODONE HCL [Concomitant]
  3. VITAMIN B COMPLEX CAP [Concomitant]
  4. ASPIRIN [Concomitant]
  5. KLONOPIN [Concomitant]
  6. OXYCODONE HCL [Concomitant]
     Dosage: 10/3.25 MG ONE TABLET TWO TIMES A DAY AS NEEDED
  7. GEMFIBROZIL [Concomitant]
  8. ZOLOFT [Suspect]
     Route: 048
     Dates: start: 20091101
  9. TOPAMAX [Concomitant]
     Indication: HEADACHE
  10. SEROQUEL [Suspect]
     Indication: BIPOLAR I DISORDER
     Route: 048
     Dates: start: 20100101, end: 20110201
  11. ZOLOFT [Suspect]
     Route: 048
     Dates: start: 20091101
  12. CALCIMAX [Suspect]
     Indication: WEIGHT DECREASED
  13. SIMVASTATIN [Concomitant]
  14. ZOLOFT [Suspect]
     Indication: BIPOLAR I DISORDER
     Route: 048
     Dates: start: 20091101
  15. ZOLOFT [Suspect]
     Indication: DEPRESSION
     Route: 048
     Dates: start: 20091101
  16. CHANTIX [Suspect]
     Indication: SMOKING CESSATION THERAPY
     Route: 048
     Dates: start: 20110601
  17. EFFEXOR XR [Suspect]
     Indication: BIPOLAR DISORDER
     Route: 048
  18. OMEPRAZOLE [Concomitant]
     Route: 048
  19. LEVOTHYROXINE SODIUM [Concomitant]
  20. MAXI-B COMPLEX [Concomitant]
  21. EFFEXOR XR [Suspect]
     Route: 048
     Dates: start: 20110617
  22. DURAGESIC-100 [Concomitant]
     Indication: PAIN
     Route: 062
  23. TOPAMAX [Concomitant]
     Indication: CONVULSION
  24. GABAPENTIN [Concomitant]
  25. PRILOSEC [Concomitant]

REACTIONS (14)
  - DEPRESSION [None]
  - NAUSEA [None]
  - CRYING [None]
  - ANGER [None]
  - ABNORMAL DREAMS [None]
  - BOREDOM [None]
  - WEIGHT INCREASED [None]
  - WEIGHT DECREASED [None]
  - NIGHTMARE [None]
  - MOOD ALTERED [None]
  - MALAISE [None]
  - MEMORY IMPAIRMENT [None]
  - ANXIETY [None]
  - IRRITABILITY [None]
